FAERS Safety Report 8445143-0 (Version None)
Quarter: 2012Q2

REPORT INFORMATION
  Report Type: 
  Country: None (occurrence: None)
  Receive Date: 20120618
  Receipt Date: 20120607
  Transmission Date: 20120825
  Serious: Yes (Death)
  Sender: FDA-Public Use
  Company Number: KR-ROCHE-1076880

PATIENT
  Sex: Female
  Weight: 50.3 kg

DRUGS (2)
  1. AVASTIN [Suspect]
     Indication: RENAL CELL CARCINOMA
     Route: 042
     Dates: start: 20100223, end: 20101105
  2. ROFERON-A [Suspect]
     Indication: RENAL CELL CARCINOMA
     Route: 058
     Dates: start: 20100223, end: 20101105

REACTIONS (5)
  - MYALGIA [None]
  - VENTRICULAR TACHYCARDIA [None]
  - CARDIAC ARREST [None]
  - DECREASED APPETITE [None]
  - FATIGUE [None]
